FAERS Safety Report 22217155 (Version 2)
Quarter: 2023Q2

REPORT INFORMATION
  Report Type: Report from Study
  Country: US (occurrence: US)
  Receive Date: 20230417
  Receipt Date: 20230515
  Transmission Date: 20230722
  Serious: Yes (Other)
  Sender: FDA-Public Use
  Company Number: US-ABBVIE-4730562

PATIENT
  Age: 70 Year
  Sex: Male

DRUGS (1)
  1. SKYRIZI [Suspect]
     Active Substance: RISANKIZUMAB-RZAA
     Indication: Psoriasis
     Route: 058
     Dates: start: 20201130

REACTIONS (6)
  - Surgery [Recovered/Resolved]
  - Coronary artery occlusion [Recovered/Resolved]
  - Haematological infection [Recovered/Resolved]
  - Arrhythmia [Unknown]
  - Blood pressure decreased [Unknown]
  - Sepsis [Unknown]

NARRATIVE: CASE EVENT DATE: 20230201
